FAERS Safety Report 14704293 (Version 1)
Quarter: 2018Q2

REPORT INFORMATION
  Report Type: Spontaneous
  Country: US (occurrence: US)
  Receive Date: 20180402
  Receipt Date: 20180402
  Transmission Date: 20180711
  Serious: No
  Sender: FDA-Public Use
  Company Number: US-ALLERGAN-1759263US

PATIENT
  Age: 89 Year
  Sex: Female

DRUGS (2)
  1. ASACOL HD [Suspect]
     Active Substance: MESALAMINE
     Indication: COLITIS ULCERATIVE
     Dosage: 10 DF, QD
     Route: 065
  2. TRAVATAN [Concomitant]
     Active Substance: TRAVOPROST
     Route: 065

REACTIONS (4)
  - Wrong technique in product usage process [Unknown]
  - Incorrect dose administered [Unknown]
  - Dyspepsia [Unknown]
  - Product physical issue [Unknown]
